FAERS Safety Report 4343974-X (Version None)
Quarter: 2004Q2

REPORT INFORMATION
  Report Type: 
  Country: None (occurrence: None)
  Receive Date: 20040422
  Receipt Date: 20040407
  Transmission Date: 20050107
  Serious: Yes (Hospitalization)
  Sender: FDA-Public Use
  Company Number: FR-ROCHE-363963

PATIENT
  Age: 64 Year
  Sex: Male
  Weight: 70 kg

DRUGS (3)
  1. KYTRIL [Suspect]
     Indication: DRUG USE FOR UNKNOWN INDICATION
     Dosage: CYCLE
     Route: 048
     Dates: start: 19980427, end: 19980622
  2. KYTRIL [Suspect]
     Dosage: CYCLE
     Route: 042
     Dates: start: 19980427, end: 19980622
  3. MUPHORAN [Suspect]
     Dosage: CYCLE
     Route: 042
     Dates: start: 19980427, end: 19980622

REACTIONS (4)
  - ALANINE AMINOTRANSFERASE INCREASED [None]
  - ASPARTATE AMINOTRANSFERASE INCREASED [None]
  - HEPATITIS [None]
  - HEPATITIS CHOLESTATIC [None]
